FAERS Safety Report 11668924 (Version 3)
Quarter: 2015Q4

REPORT INFORMATION
  Report Type: Report from Study
  Country: DE (occurrence: DE)
  Receive Date: 20151027
  Receipt Date: 20151204
  Transmission Date: 20160304
  Serious: Yes (Hospitalization)
  Sender: FDA-Public Use
  Company Number: DE-ABBVIE-15P-062-1484958-00

PATIENT
  Age: 83 Year
  Sex: Male

DRUGS (5)
  1. PANTOPRAZOLE [Concomitant]
     Active Substance: PANTOPRAZOLE SODIUM
     Indication: PRODUCT USED FOR UNKNOWN INDICATION
  2. DUODOPA [Suspect]
     Active Substance: CARBIDOPA\LEVODOPA
     Dosage: MD 2.5ML, CRD 2.9ML/H, ED 1ML
     Route: 050
  3. DIGITOXINE [Concomitant]
     Indication: PRODUCT USED FOR UNKNOWN INDICATION
  4. INSUMAN COMB [Concomitant]
     Active Substance: INSULIN NOS
     Indication: PRODUCT USED FOR UNKNOWN INDICATION
  5. DUODOPA [Suspect]
     Active Substance: CARBIDOPA\LEVODOPA
     Indication: PARKINSON^S DISEASE
     Dosage: MD 2.5ML, CRD 2.1ML/H, ED 1ML
     Route: 050
     Dates: start: 20140130

REACTIONS (15)
  - Upper gastrointestinal haemorrhage [Unknown]
  - Pleural effusion [Unknown]
  - Duodenal ulcer [Unknown]
  - Aphasia [Not Recovered/Not Resolved]
  - Blood glucose increased [Unknown]
  - Mobility decreased [Unknown]
  - Dysphagia [Unknown]
  - Volvulus [Recovering/Resolving]
  - Cardiomegaly [Unknown]
  - Loss of consciousness [Not Recovered/Not Resolved]
  - Speech disorder [Unknown]
  - Parkinsonism [Recovering/Resolving]
  - General physical health deterioration [Unknown]
  - Device dislocation [Unknown]
  - Incorrect route of drug administration [Unknown]

NARRATIVE: CASE EVENT DATE: 20151018
